FAERS Safety Report 21024416 (Version 2)
Quarter: 2022Q3

REPORT INFORMATION
  Report Type: Spontaneous
  Country: FR (occurrence: FR)
  Receive Date: 20220629
  Receipt Date: 20220715
  Transmission Date: 20221027
  Serious: Yes (Other)
  Sender: FDA-Public Use
  Company Number: FR-SANOFI-01155208

PATIENT
  Age: 56 Year
  Sex: Male

DRUGS (5)
  1. CLOBAZAM [Suspect]
     Active Substance: CLOBAZAM
     Indication: Epilepsy
     Dosage: 5 MG, BID
     Route: 065
  2. CLOBAZAM [Suspect]
     Active Substance: CLOBAZAM
     Dosage: 5 MG, TID
     Route: 065
  3. LAMICTAL [Concomitant]
     Active Substance: LAMOTRIGINE
     Indication: Epilepsy
     Dosage: LAMICTAL 50 MG IN THE MORNING, 100 MG IN THE EVENING
     Route: 065
  4. ATENOLOL [Concomitant]
     Active Substance: ATENOLOL
     Indication: Arrhythmia
     Dosage: 3 TIMES 25 MG /DAY
     Route: 065
  5. ATENOLOL [Concomitant]
     Active Substance: ATENOLOL
     Indication: Tachycardia

REACTIONS (9)
  - Epilepsy [Unknown]
  - Bradycardia [Not Recovered/Not Resolved]
  - Aphasia [Unknown]
  - Balance disorder [Unknown]
  - Heart rate decreased [Unknown]
  - Oxygen saturation decreased [Unknown]
  - Sleep apnoea syndrome [Unknown]
  - Contraindicated product prescribed [Unknown]
  - Wrong technique in product usage process [Unknown]
